FAERS Safety Report 8620278-8 (Version None)
Quarter: 2012Q3

REPORT INFORMATION
  Report Type: 
  Country: None (occurrence: None)
  Receive Date: 20120824
  Receipt Date: 20120824
  Transmission Date: 20120928
  Serious: Yes (Hospitalization)
  Sender: FDA-Public Use
  Company Number: DE-BAYER-2012-087814

PATIENT
  Age: 68 Year
  Sex: Female
  Weight: 60 kg

DRUGS (1)
  1. GADAVIST [Suspect]

REACTIONS (2)
  - OROPHARYNGEAL DISCOMFORT [None]
  - SENSATION OF FOREIGN BODY [None]
